FAERS Safety Report 6708939-9 (Version None)
Quarter: 2010Q2

REPORT INFORMATION
  Report Type: 
  Country: None (occurrence: None)
  Receive Date: 20100504
  Receipt Date: 20100423
  Transmission Date: 20101027
  Serious: Yes (Other)
  Sender: FDA-Public Use
  Company Number: GB-TEVA-228945ISR

PATIENT
  Age: 67 Year
  Sex: Male
  Weight: 96 kg

DRUGS (3)
  1. HYDROCORTISONE [Suspect]
  2. CHLORPHENIRAMINE MALEATE [Suspect]
     Indication: INFUSION
     Route: 042
     Dates: start: 20100225, end: 20100225
  3. INFLIXIMAB [Suspect]
     Indication: CROHN'S DISEASE
     Route: 041
     Dates: start: 20100225, end: 20100225

REACTIONS (4)
  - BLOOD PRESSURE DECREASED [None]
  - BRADYCARDIA [None]
  - MALAISE [None]
  - PALLOR [None]
